FAERS Safety Report 19123054 (Version 3)
Quarter: 2021Q3

REPORT INFORMATION
  Report Type: Spontaneous
  Country: US (occurrence: US)
  Receive Date: 20210412
  Receipt Date: 20210927
  Transmission Date: 20211014
  Serious: No
  Sender: FDA-Public Use
  Company Number: US-PFIZER INC-2021339149

PATIENT
  Age: 72 Year
  Sex: Female

DRUGS (1)
  1. XELJANZ [Suspect]
     Active Substance: TOFACITINIB CITRATE
     Dosage: 5 MG, 2X/DAY

REACTIONS (6)
  - Rotator cuff repair [Unknown]
  - Abdominal pain upper [Unknown]
  - Illness [Unknown]
  - Micturition disorder [Unknown]
  - Anaemia [Unknown]
  - Urinary tract infection [Unknown]
